FAERS Safety Report 24953494 (Version 1)
Quarter: 2025Q1

REPORT INFORMATION
  Report Type: Spontaneous
  Country: GB (occurrence: GB)
  Receive Date: 20250211
  Receipt Date: 20250211
  Transmission Date: 20250409
  Serious: Yes (Other)
  Sender: MSN LABORATORIES PRIVATE LIMITED
  Company Number: None

PATIENT

DRUGS (5)
  1. ATORVASTATIN [Suspect]
     Active Substance: ATORVASTATIN
     Indication: Low density lipoprotein increased
     Dosage: 25MG AT NIGHT
     Route: 065
     Dates: start: 20240401, end: 20250107
  2. MONTELUKAST [Concomitant]
     Active Substance: MONTELUKAST
     Indication: Adverse drug reaction
     Route: 065
     Dates: start: 20140101
  3. CETIRIZINE [Concomitant]
     Active Substance: CETIRIZINE HYDROCHLORIDE
     Indication: Adverse drug reaction
     Route: 065
     Dates: start: 19900101
  4. FLUTICASONE FUROATE\VILANTEROL TRIFENATATE [Concomitant]
     Active Substance: FLUTICASONE FUROATE\VILANTEROL TRIFENATATE
     Indication: Chronic rhinosinusitis with nasal polyps
     Route: 065
  5. FLUTICASONE FUROATE\VILANTEROL TRIFENATATE [Concomitant]
     Active Substance: FLUTICASONE FUROATE\VILANTEROL TRIFENATATE
     Indication: NSAID exacerbated respiratory disease

REACTIONS (4)
  - Deafness [Recovering/Resolving]
  - Tinnitus [Recovering/Resolving]
  - Neuropathy peripheral [Recovering/Resolving]
  - Carpal tunnel syndrome [Unknown]

NARRATIVE: CASE EVENT DATE: 20240901
